FAERS Safety Report 8207168-X (Version None)
Quarter: 2012Q1

REPORT INFORMATION
  Report Type: 
  Country: None (occurrence: None)
  Receive Date: 20120312
  Receipt Date: 20120301
  Transmission Date: 20120608
  Serious: Yes (Hospitalization)
  Sender: FDA-Public Use
  Company Number: AUR-APL-2012-01317

PATIENT
  Age: 29 Year
  Sex: Female

DRUGS (4)
  1. LEVOFLOXACIN [Suspect]
     Indication: PNEUMONIA
  2. CEFTRIAXONE [Concomitant]
  3. SIROLIMUS (RAPAMUNE) [Concomitant]
  4. MYCOPHENOLATE MOFETIL [Concomitant]

REACTIONS (3)
  - ARTHRALGIA [None]
  - ERYTHEMA NODOSUM [None]
  - DIARRHOEA [None]
